FAERS Safety Report 23229911 (Version 1)
Quarter: 2023Q4

REPORT INFORMATION
  Report Type: Spontaneous
  Country: CN (occurrence: CN)
  Receive Date: 20231127
  Receipt Date: 20231127
  Transmission Date: 20240110
  Serious: Yes (Other)
  Sender: FDA-Public Use
  Company Number: None

PATIENT
  Age: 16 Year
  Sex: Female

DRUGS (33)
  1. OLANZAPINE [Suspect]
     Active Substance: OLANZAPINE
     Indication: Schizophrenia
     Dosage: 15 DAY AFTER HOSPITALIZATION, (5 MG IN THE MORNING AND 10 MG IN THE EVENING)
     Dates: start: 2018, end: 2018
  2. OLANZAPINE [Suspect]
     Active Substance: OLANZAPINE
     Indication: Schizophrenia
     Dosage: 7 DAY AFTER HOSPITALIZATION?DAILY DOSE: 7.5 MILLIGRAM
     Dates: start: 2018, end: 2018
  3. OLANZAPINE [Suspect]
     Active Substance: OLANZAPINE
     Indication: Schizophrenia
     Dosage: 30 DAY AND DAY 35 AFTER HOSPITALIZATION?DAILY DOSE: 20 MILLIGRAM
     Dates: start: 2018, end: 2018
  4. OLANZAPINE [Suspect]
     Active Substance: OLANZAPINE
     Indication: Schizophrenia
     Dosage: 1 DAY AFTER HOSPITALIZATION?DAILY DOSE: 2.5 MILLIGRAM
     Dates: start: 2018, end: 2018
  5. OLANZAPINE [Suspect]
     Active Substance: OLANZAPINE
     Indication: Schizophrenia
     Dosage: SEQUENCE OF THERAPEUTIC SCHEDULE 5?DAILY DOSE: 20 MILLIGRAM
     Dates: start: 2018, end: 2019
  6. OLANZAPINE [Suspect]
     Active Substance: OLANZAPINE
     Indication: Schizophrenia
     Dosage: SEQUENCE OF THERAPEUTIC SCHEDULE 2?DAILY DOSE: 20 MILLIGRAM
     Dates: start: 2018, end: 2019
  7. OLANZAPINE [Suspect]
     Active Substance: OLANZAPINE
     Indication: Schizophrenia
     Dosage: SEQUENCE OF THERAPEUTIC SCHEDULE 3, BID?DAILY DOSE: 20 MILLIGRAM
     Dates: start: 2018, end: 2019
  8. OLANZAPINE [Suspect]
     Active Substance: OLANZAPINE
     Indication: Schizophrenia
     Dosage: DAILY DOSE: 15 MILLIGRAM
     Dates: start: 2018, end: 2019
  9. OLANZAPINE [Suspect]
     Active Substance: OLANZAPINE
     Indication: Schizophrenia
     Dosage: DAY 45 AFTER ADMISSION?DAILY DOSE: 15 MILLIGRAM
     Dates: start: 2018
  10. PALIPERIDONE [Suspect]
     Active Substance: PALIPERIDONE
     Indication: Schizophrenia
     Dosage: 35 DAYS AFTER ADMISSION?DAILY DOSE: 3 MILLIGRAM
     Route: 048
     Dates: start: 2018, end: 2018
  11. PALIPERIDONE [Suspect]
     Active Substance: PALIPERIDONE
     Indication: Schizophrenia
     Dosage: 3 MG IN THE MORNING AND 9 MG IN THE EVENING?DAILY DOSE: 12 MILLIGRAM
     Route: 048
     Dates: start: 2018, end: 2019
  12. PALIPERIDONE [Suspect]
     Active Substance: PALIPERIDONE
     Indication: Schizophrenia
     Dosage: SEQUENCE OF THERAPEUTIC SCHEDULE 3?DAILY DOSE: 9 MILLIGRAM
     Route: 048
     Dates: start: 2018, end: 2019
  13. PALIPERIDONE [Suspect]
     Active Substance: PALIPERIDONE
     Indication: Schizophrenia
     Dosage: DAILY DOSE: 12 MILLIGRAM
     Route: 048
     Dates: start: 2018, end: 2019
  14. PALIPERIDONE [Suspect]
     Active Substance: PALIPERIDONE
     Indication: Schizophrenia
     Dosage: DAILY DOSE: 12 MILLIGRAM
     Route: 048
     Dates: start: 2020, end: 2021
  15. PALIPERIDONE [Suspect]
     Active Substance: PALIPERIDONE
     Indication: Schizophrenia
     Dosage: DAILY DOSE: 9 MILLIGRAM
     Route: 048
     Dates: start: 2020, end: 2021
  16. PALIPERIDONE [Suspect]
     Active Substance: PALIPERIDONE
     Indication: Schizophrenia
     Dosage: DAILY DOSE: 3 MILLIGRAM
     Route: 048
     Dates: start: 2020, end: 2021
  17. PALIPERIDONE [Suspect]
     Active Substance: PALIPERIDONE
     Indication: Schizophrenia
     Dosage: SEQUENCE OF THERAPEUTIC SCHEDULE AT 4, 5, BID?DAILY DOSE: 12 MILLIGRAM
     Route: 048
  18. ARIPIPRAZOLE [Suspect]
     Active Substance: ARIPIPRAZOLE
     Indication: Schizophrenia
     Dosage: DAY 1 HOSPITALIZATION?DAILY DOSE: 10 MILLIGRAM
     Dates: start: 2018, end: 2018
  19. ARIPIPRAZOLE [Suspect]
     Active Substance: ARIPIPRAZOLE
     Indication: Schizophrenia
     Dosage: DAY 15 AFTER ADMISSION?DAILY DOSE: 30 MILLIGRAM
     Dates: start: 2018, end: 2018
  20. ARIPIPRAZOLE [Suspect]
     Active Substance: ARIPIPRAZOLE
     Indication: Schizophrenia
     Dosage: DAY 7 HOSPITALIZATION?DAILY DOSE: 20 MILLIGRAM
     Dates: start: 2018, end: 2018
  21. ARIPIPRAZOLE [Suspect]
     Active Substance: ARIPIPRAZOLE
     Indication: Schizophrenia
     Dosage: DAILY DOSE: 10 MILLIGRAM
     Dates: start: 2018, end: 2019
  22. ARIPIPRAZOLE [Suspect]
     Active Substance: ARIPIPRAZOLE
     Indication: Schizophrenia
     Dosage: DAILY DOSE: 5 MILLIGRAM
     Dates: start: 2018, end: 2019
  23. ARIPIPRAZOLE [Suspect]
     Active Substance: ARIPIPRAZOLE
     Indication: Schizophrenia
     Dosage: DAY 35 AFTER ADMISSION, BID?DAILY DOSE: 30 MILLIGRAM
     Dates: start: 2018
  24. ARIPIPRAZOLE [Suspect]
     Active Substance: ARIPIPRAZOLE
     Indication: Schizophrenia
     Dosage: DAILY DOSE: 10 MILLIGRAM
     Dates: start: 2021, end: 2022
  25. ARIPIPRAZOLE [Suspect]
     Active Substance: ARIPIPRAZOLE
     Indication: Schizophrenia
     Dosage: DAILY DOSE: 5 MILLIGRAM
     Dates: start: 2021, end: 2022
  26. ARIPIPRAZOLE [Suspect]
     Active Substance: ARIPIPRAZOLE
     Indication: Schizophrenia
     Dosage: DAILY DOSE: 30 MILLIGRAM
  27. ARIPIPRAZOLE [Suspect]
     Active Substance: ARIPIPRAZOLE
     Indication: Schizophrenia
     Dosage: DAILY DOSE: 15 MILLIGRAM
  28. CLOZAPINE [Suspect]
     Active Substance: CLOZAPINE
     Indication: Schizophrenia
     Dosage: DAILY DOSE: 100 MILLIGRAM
     Dates: start: 2020, end: 2021
  29. CLOZAPINE [Suspect]
     Active Substance: CLOZAPINE
     Indication: Schizophrenia
     Dosage: DAILY DOSE: 100 MILLIGRAM
     Dates: start: 2020, end: 2021
  30. CLOZAPINE [Suspect]
     Active Substance: CLOZAPINE
     Indication: Schizophrenia
     Dosage: DAILY DOSE: 100 MILLIGRAM
     Dates: start: 2020, end: 2021
  31. CLOZAPINE [Suspect]
     Active Substance: CLOZAPINE
     Indication: Schizophrenia
     Dosage: DAILY DOSE: 50 MILLIGRAM
     Dates: start: 2021, end: 2022
  32. CLOZAPINE [Suspect]
     Active Substance: CLOZAPINE
     Indication: Schizophrenia
     Dosage: DAILY DOSE: 25 MILLIGRAM
     Dates: start: 2021, end: 2022
  33. RISPERIDONE [Suspect]
     Active Substance: RISPERIDONE
     Indication: Schizophrenia

REACTIONS (2)
  - Hyperprolactinaemia [Recovered/Resolved]
  - Weight increased [Recovered/Resolved]

NARRATIVE: CASE EVENT DATE: 20190101
